FAERS Safety Report 7748948-4 (Version None)
Quarter: 2011Q3

REPORT INFORMATION
  Report Type: 
  Country: None (occurrence: None)
  Receive Date: 20110909
  Receipt Date: 20110825
  Transmission Date: 20111222
  Serious: Yes (Congenital Anomaly)
  Sender: FDA-Public Use
  Company Number: GER/GER/11/0020818

PATIENT

DRUGS (3)
  1. FOLSAURE [Concomitant]
  2. CITALOPRAM HYDROBROMIDE [Suspect]
     Indication: PRODUCT USED FOR UNKNOWN INDICATION
     Dosage: TRANSPLACENTAL; 20 MG, TRANSPLACENTAL
     Route: 064
     Dates: start: 20100102, end: 20100821
  3. CITALOPRAM HYDROBROMIDE [Suspect]
     Indication: PRODUCT USED FOR UNKNOWN INDICATION
     Dosage: TRANSPLACENTAL; 20 MG, TRANSPLACENTAL
     Route: 064

REACTIONS (3)
  - ABORTION INDUCED [None]
  - SPINA BIFIDA [None]
  - MATERNAL DRUGS AFFECTING FOETUS [None]
